FAERS Safety Report 18156546 (Version 1)
Quarter: 2020Q3

REPORT INFORMATION
  Report Type: Spontaneous
  Country: US (occurrence: US)
  Receive Date: 20200816
  Receipt Date: 20200816
  Transmission Date: 20201103
  Serious: No
  Sender: FDA-Public Use
  Company Number: None

PATIENT
  Age: 52 Year
  Sex: Female
  Weight: 101.25 kg

DRUGS (5)
  1. ESTROVEN [Concomitant]
     Active Substance: DIETARY SUPPLEMENT
  2. XIIDRA [Suspect]
     Active Substance: LIFITEGRAST
     Indication: OCULAR HYPERAEMIA
  3. FISH OIL [Concomitant]
     Active Substance: FISH OIL
  4. XIIDRA [Suspect]
     Active Substance: LIFITEGRAST
     Indication: DRY EYE
  5. ALLERGY PILLS (ALLERTEC) [Concomitant]

REACTIONS (4)
  - Eye pain [None]
  - Hypersensitivity [None]
  - Therapy cessation [None]
  - Ocular hyperaemia [None]

NARRATIVE: CASE EVENT DATE: 20200315
